FAERS Safety Report 9528426 (Version 2)
Quarter: 2013Q4

REPORT INFORMATION
  Report Type: Spontaneous
  Country: FI (occurrence: FI)
  Receive Date: 20130917
  Receipt Date: 20131007
  Transmission Date: 20140711
  Serious: Yes (Hospitalization)
  Sender: FDA-Public Use
  Company Number: FI-ASTELLAS-2013EU007816

PATIENT
  Sex: Female

DRUGS (7)
  1. BETMIGA [Suspect]
     Indication: URINARY INCONTINENCE
     Dosage: 50 MG, UID/QD
     Route: 048
     Dates: start: 20130627
  2. MAREVAN [Concomitant]
     Dosage: 5 MG, UNKNOWN/D
     Route: 065
  3. FURESIS [Concomitant]
     Dosage: 20 MG, UID/QD
     Route: 065
  4. VERAPAMIL [Concomitant]
     Dosage: 40 MG, TID
     Route: 065
  5. EBIXA [Concomitant]
     Dosage: 10 MG, UID/QD
     Route: 065
  6. DEVISOL [Concomitant]
     Dosage: UNK
     Route: 065
  7. VITAMIIN C [Concomitant]
     Dosage: UNK
     Route: 065

REACTIONS (3)
  - Heart rate increased [Unknown]
  - Decreased appetite [Unknown]
  - Nausea [Unknown]
